FAERS Safety Report 12442712 (Version 3)
Quarter: 2016Q2

REPORT INFORMATION
  Report Type: Spontaneous
  Country: US (occurrence: US)
  Receive Date: 20160607
  Receipt Date: 20160628
  Transmission Date: 20160815
  Serious: No
  Sender: FDA-Public Use
  Company Number: US-OTSUKA-2016_012123

PATIENT
  Age: 29 Year
  Sex: Male

DRUGS (1)
  1. ONZETRA [Suspect]
     Active Substance: SUMATRIPTAN SUCCINATE
     Indication: MIGRAINE
     Dosage: 22 MG, SINGLE
     Route: 045

REACTIONS (6)
  - Dizziness [Recovered/Resolved]
  - Drug ineffective [Unknown]
  - Autoscopy [Recovered/Resolved]
  - Bone pain [Recovered/Resolved]
  - Hypoaesthesia [Recovered/Resolved]
  - Urinary incontinence [Recovered/Resolved]
